FAERS Safety Report 4617209-4 (Version None)
Quarter: 2005Q1

REPORT INFORMATION
  Report Type: 
  Country: None (occurrence: None)
  Receive Date: 20050323
  Receipt Date: 20050315
  Transmission Date: 20050727
  Serious: Yes (Hospitalization)
  Sender: FDA-Public Use
  Company Number: PHHO2005JP04592

PATIENT
  Age: 73 Year
  Sex: Female

DRUGS (8)
  1. LOCHOL [Suspect]
     Indication: HYPERCHOLESTEROLAEMIA
     Dosage: 20 MG, QD
     Route: 048
     Dates: start: 20010419
  2. LOPRESSOR [Suspect]
     Indication: HYPERTENSION
     Dosage: 60 MG, QD
     Route: 048
     Dates: start: 19980817
  3. LANDEL [Suspect]
     Indication: HYPERTENSION
     Dosage: 40 MG, QD
     Route: 048
     Dates: start: 19970526
  4. BLOPRESS [Suspect]
     Indication: HYPERTENSION
     Dosage: 4 MG, QD
     Route: 048
     Dates: start: 20000629
  5. BLOPRESS [Suspect]
     Dosage: 8 MG, QD
     Route: 048
     Dates: start: 20011004
  6. ALDACTONE [Suspect]
     Indication: HYPERTENSION
     Dosage: 12.5 MG, QD
     Route: 048
     Dates: start: 20020913
  7. DORAL [Suspect]
     Route: 048
  8. ACINON [Concomitant]
     Indication: GASTRIC ULCER

REACTIONS (4)
  - ABDOMINAL PAIN [None]
  - LAPAROSCOPIC SURGERY [None]
  - PANCREATITIS [None]
  - PANCREATOLITHIASIS [None]
